APPROVED DRUG PRODUCT: PROPAFENONE HYDROCHLORIDE
Active Ingredient: PROPAFENONE HYDROCHLORIDE
Strength: 300MG
Dosage Form/Route: TABLET;ORAL
Application: A076193 | Product #003
Applicant: NESHER PHARMACEUTICALS USA LLC
Approved: Feb 7, 2002 | RLD: No | RS: No | Type: DISCN